FAERS Safety Report 25183415 (Version 1)
Quarter: 2025Q2

REPORT INFORMATION
  Report Type: Spontaneous
  Country: US (occurrence: US)
  Receive Date: 20250410
  Receipt Date: 20250410
  Transmission Date: 20250717
  Serious: No
  Sender: JOHNSON AND JOHNSON
  Company Number: US-JNJFOC-20250388091

PATIENT

DRUGS (3)
  1. MACITENTAN\TADALAFIL [Suspect]
     Active Substance: MACITENTAN\TADALAFIL
     Indication: Product used for unknown indication
     Route: 048
  2. SILDENAFIL [Concomitant]
     Active Substance: SILDENAFIL
  3. OPSUMIT [Concomitant]
     Active Substance: MACITENTAN

REACTIONS (2)
  - Abdominal discomfort [Unknown]
  - Decreased appetite [Unknown]
